FAERS Safety Report 18543915 (Version 1)
Quarter: 2020Q4

REPORT INFORMATION
  Report Type: Spontaneous
  Country: US (occurrence: US)
  Receive Date: 20201124
  Receipt Date: 20201124
  Transmission Date: 20210114
  Serious: Yes (Hospitalization)
  Sender: FDA-Public Use
  Company Number: None

PATIENT
  Age: 56 Year
  Sex: Male

DRUGS (2)
  1. MYCOPHENOLATE, 500MG [Suspect]
     Active Substance: MYCOPHENOLIC ACID
     Indication: RENAL TRANSPLANT
     Route: 048
     Dates: start: 20160211
  2. TACROLIMUS, 1MG [Suspect]
     Active Substance: TACROLIMUS
     Indication: RENAL TRANSPLANT
     Route: 048
     Dates: start: 20160211

REACTIONS (4)
  - Product dose omission in error [None]
  - Hypoaesthesia [None]
  - Blood glucose increased [None]
  - Mobility decreased [None]

NARRATIVE: CASE EVENT DATE: 202011
